FAERS Safety Report 5518340-1 (Version None)
Quarter: 2007Q4

REPORT INFORMATION
  Report Type: 
  Country: None (occurrence: None)
  Receive Date: 20071113
  Receipt Date: 20071113
  Transmission Date: 20080405
  Serious: Yes (Death)
  Sender: FDA-Public Use
  Company Number: None

PATIENT
  Age: 86 Year
  Sex: Male

DRUGS (11)
  1. SIMVASTATIN [Suspect]
     Indication: HYPERLIPIDAEMIA
     Dosage: 40MG ALTERNATE WITH 80MG  DAILY  PO
     Route: 048
     Dates: start: 20060206, end: 20070827
  2. GEMFIBROZIL [Suspect]
     Indication: BLOOD TRIGLYCERIDES INCREASED
     Dosage: 600MG  DAILY  PO
     Route: 048
  3. NORVASC [Concomitant]
  4. ASPIRIN [Concomitant]
  5. PLAVIX [Concomitant]
  6. TENORMIN [Concomitant]
  7. CLONIDINE [Concomitant]
  8. HYDROCHLOROTHIAZIDE [Concomitant]
  9. NORTRIPTYLINE HCL [Concomitant]
  10. PAROXETINE [Concomitant]
  11. RIVASTIGMINE [Concomitant]

REACTIONS (7)
  - BLOOD CREATINE PHOSPHOKINASE INCREASED [None]
  - HAEMODIALYSIS [None]
  - HYPERKALAEMIA [None]
  - ISCHAEMIC STROKE [None]
  - METABOLIC ACIDOSIS [None]
  - MUSCULAR WEAKNESS [None]
  - RENAL FAILURE ACUTE [None]
